FAERS Safety Report 21922360 (Version 3)
Quarter: 2023Q1

REPORT INFORMATION
  Report Type: Report from Study
  Country: GB (occurrence: GB)
  Receive Date: 20230128
  Receipt Date: 20230206
  Transmission Date: 20230418
  Serious: Yes (Congenital Anomaly)
  Sender: FDA-Public Use
  Company Number: GB-ABBVIE-4283711

PATIENT
  Sex: Male
  Weight: 1.4 kg

DRUGS (1)
  1. NORVIR [Suspect]
     Active Substance: RITONAVIR
     Indication: HIV infection
     Route: 048

REACTIONS (7)
  - Cytogenetic abnormality [Unknown]
  - Periventricular leukomalacia [Unknown]
  - Neonatal respiratory distress syndrome [Unknown]
  - Intraventricular haemorrhage neonatal [Unknown]
  - Epilepsy [Unknown]
  - Hyperbilirubinaemia [Unknown]
  - White matter lesion [Unknown]
